FAERS Safety Report 15196275 (Version 1)
Quarter: 2018Q3

REPORT INFORMATION
  Report Type: Spontaneous
  Country: US (occurrence: US)
  Receive Date: 20180725
  Receipt Date: 20180725
  Transmission Date: 20181010
  Serious: No
  Sender: FDA-Public Use
  Company Number: US-ALKERMES INC.-ALK-2018-003752

PATIENT
  Age: 35 Year
  Sex: Male
  Weight: 95.24 kg

DRUGS (2)
  1. ARISTADA [Suspect]
     Active Substance: ARIPIPRAZOLE LAUROXIL
     Dosage: UNK MG, QMO
     Route: 030
     Dates: start: 201805
  2. ARISTADA [Suspect]
     Active Substance: ARIPIPRAZOLE LAUROXIL
     Indication: BIPOLAR I DISORDER
     Dosage: UNK UNK, QMO
     Route: 030

REACTIONS (5)
  - Fatigue [Not Recovered/Not Resolved]
  - Drug ineffective [Recovered/Resolved]
  - Somnolence [Not Recovered/Not Resolved]
  - Skin irritation [Recovered/Resolved]
  - Off label use [Not Recovered/Not Resolved]

NARRATIVE: CASE EVENT DATE: 2018
